FAERS Safety Report 12843714 (Version 2)
Quarter: 2016Q4

REPORT INFORMATION
  Report Type: Spontaneous
  Country: US (occurrence: US)
  Receive Date: 20161013
  Receipt Date: 20161129
  Transmission Date: 20170207
  Serious: No
  Sender: FDA-Public Use
  Company Number: US-SHIRE-US201614658

PATIENT
  Age: 62 Year
  Sex: Female
  Weight: 71.66 kg

DRUGS (8)
  1. VYVANSE [Suspect]
     Active Substance: LISDEXAMFETAMINE DIMESYLATE
     Indication: BINGE EATING
     Dosage: 30 MG, 1X/DAY:QD
     Route: 048
     Dates: start: 2016, end: 2016
  2. VYVANSE [Suspect]
     Active Substance: LISDEXAMFETAMINE DIMESYLATE
     Dosage: UNK, 2X/DAY:BID(50MG CAPSULE OPENDED:TAKE SOME OUT IN AM AND TAKE THE REST OF CAPSULE LATER IN DAY)
     Route: 048
     Dates: start: 2016, end: 2016
  3. VYVANSE [Suspect]
     Active Substance: LISDEXAMFETAMINE DIMESYLATE
     Dosage: UNK, 2X/DAY:BID(50MG CAPSULE OPENDED:TAKE SOME OUT IN AM AND TAKE THE REST OF CAPSULE LATER IN DAY)
     Route: 048
     Dates: start: 201609
  4. PRALUENT [Concomitant]
     Active Substance: ALIROCUMAB
     Indication: BLOOD CHOLESTEROL INCREASED
     Dosage: UNK, OTHER(INJECTION TWICE A MONTH)
     Route: 065
  5. VYVANSE [Suspect]
     Active Substance: LISDEXAMFETAMINE DIMESYLATE
     Dosage: UNK, 2X/DAY:BID(70 MG CAPSULE OPENDED:TAKE SOME OUT IN AM AND TAKE THE REST OF CAPSULE LATER IN DAY)
     Route: 048
     Dates: start: 201608, end: 201609
  6. VYVANSE [Suspect]
     Active Substance: LISDEXAMFETAMINE DIMESYLATE
     Dosage: UNK, 2X/DAY:BID(60MG CAPSULE OPENDED:TAKE SOME OUT IN AM AND TAKE THE REST OF CAPSULE LATER IN DAY)
     Route: 048
     Dates: start: 2016, end: 2016
  7. VYVANSE [Suspect]
     Active Substance: LISDEXAMFETAMINE DIMESYLATE
     Dosage: UNK, 2X/DAY:BID(40MG CAPSULE OPENDED:TAKE SOME OUT IN AM AND TAKE THE REST OF CAPSULE LATER IN DAY)
     Route: 048
     Dates: start: 2016, end: 2016
  8. VYVANSE [Suspect]
     Active Substance: LISDEXAMFETAMINE DIMESYLATE
     Dosage: UNK, 2X/DAY:BID(30 MG CAPSULE OPENDED:TAKE SOME OUT IN AM AND TAKE THE REST OF CAPSULE LATER IN DAY)
     Route: 048
     Dates: start: 2016, end: 2016

REACTIONS (12)
  - Drug effect decreased [Not Recovered/Not Resolved]
  - Wrong technique in product usage process [Not Recovered/Not Resolved]
  - Inappropriate schedule of drug administration [Not Recovered/Not Resolved]
  - Dry mouth [Not Recovered/Not Resolved]
  - Product quality issue [Unknown]
  - Heart rate increased [Recovered/Resolved]
  - Onychoclasis [Not Recovered/Not Resolved]
  - Drug effect increased [Recovered/Resolved]
  - Incorrect dose administered [Not Recovered/Not Resolved]
  - Dysphonia [Not Recovered/Not Resolved]
  - Tension [Recovered/Resolved]
  - Condition aggravated [Not Recovered/Not Resolved]

NARRATIVE: CASE EVENT DATE: 2016
